FAERS Safety Report 16836979 (Version 1)
Quarter: 2019Q3

REPORT INFORMATION
  Report Type: Spontaneous
  Country: US (occurrence: US)
  Receive Date: 20190923
  Receipt Date: 20190923
  Transmission Date: 20191005
  Serious: No
  Sender: FDA-Public Use
  Company Number: US-NOVEN PHARMACEUTICALS, INC.-US2018000481

PATIENT

DRUGS (4)
  1. COMBIPATCH [Suspect]
     Active Substance: ESTRADIOL\NORETHINDRONE ACETATE
     Indication: VULVOVAGINAL DRYNESS
     Dosage: UNK, UNKNOWN
     Route: 062
     Dates: start: 201807
  2. COMBIPATCH [Suspect]
     Active Substance: ESTRADIOL\NORETHINDRONE ACETATE
     Indication: ATROPHIC VULVOVAGINITIS
  3. VOLUVEN [Concomitant]
     Active Substance: HYDROXYETHYL STARCH 130/0.4
     Indication: HYPERTENSION
  4. COMBIPATCH [Suspect]
     Active Substance: ESTRADIOL\NORETHINDRONE ACETATE
     Indication: HYPERTONIC BLADDER

REACTIONS (6)
  - Off label use [Not Recovered/Not Resolved]
  - Headache [Unknown]
  - Nausea [Unknown]
  - Breast enlargement [Unknown]
  - Breast pain [Unknown]
  - Therapeutic response unexpected [Unknown]

NARRATIVE: CASE EVENT DATE: 2018
